FAERS Safety Report 7577175-9 (Version None)
Quarter: 2011Q2

REPORT INFORMATION
  Report Type: 
  Country: None (occurrence: None)
  Receive Date: 20110628
  Receipt Date: 20110520
  Transmission Date: 20111010
  Serious: Yes (Other)
  Sender: FDA-Public Use
  Company Number: IT-BAYER-2011-051607

PATIENT
  Age: 49 Year
  Sex: Female

DRUGS (3)
  1. NAPROXEN SODIUM [Suspect]
     Indication: TOOTHACHE
     Dosage: 550 MG, QD
     Route: 048
     Dates: start: 20110414, end: 20110414
  2. METFORMIN HCL [Concomitant]
     Indication: DIABETES MELLITUS
     Dosage: 2 G, UNK
     Dates: start: 20100101
  3. ZIMOX [CARBIDOPA,LEVODOPA] [Suspect]
     Dosage: 1 G, QD
     Route: 045
     Dates: start: 20110415, end: 20110415

REACTIONS (3)
  - DERMATITIS ALLERGIC [None]
  - ERYTHEMA [None]
  - PRURITUS [None]
